FAERS Safety Report 6672325-0 (Version None)
Quarter: 2010Q2

REPORT INFORMATION
  Report Type: 
  Country: None (occurrence: None)
  Receive Date: 20100408
  Receipt Date: 20100331
  Transmission Date: 20101027
  Serious: Yes (Other)
  Sender: FDA-Public Use
  Company Number: US-ASTRAZENECA-2009SE26653

PATIENT
  Age: 21709 Day
  Sex: Female

DRUGS (11)
  1. SEROQUEL [Suspect]
     Dosage: 200 MG AT NIGHT,25 MG THREE TIMES A DAY
     Route: 048
     Dates: start: 20070319
  2. LYRICA [Concomitant]
     Dates: start: 20090831
  3. CRESTOR [Concomitant]
     Dates: start: 20090831
  4. AMBIEN CR [Concomitant]
     Dates: start: 20070319
  5. BENZTROPINE MESYLATE [Concomitant]
     Dates: start: 20070319
  6. METOPROLOL TARTRATE [Concomitant]
     Dates: start: 20070319
  7. LEXAPRO [Concomitant]
     Dates: start: 20070319
  8. NEXIUM [Concomitant]
     Dates: start: 20070319
  9. ASPIRIN [Concomitant]
     Dates: start: 20070319
  10. ZELNORM [Concomitant]
     Dates: start: 20070319
  11. HYZAAR [Concomitant]

REACTIONS (3)
  - BLOOD GLUCOSE INCREASED [None]
  - NEUROPATHY PERIPHERAL [None]
  - TYPE 2 DIABETES MELLITUS [None]
